FAERS Safety Report 7522385-X (Version None)
Quarter: 2011Q2

REPORT INFORMATION
  Report Type: 
  Country: None (occurrence: None)
  Receive Date: 20110603
  Receipt Date: 20110520
  Transmission Date: 20111010
  Serious: Yes (Other)
  Sender: FDA-Public Use
  Company Number: CA-ELI_LILLY_AND_COMPANY-CA201105006055

PATIENT
  Sex: Female

DRUGS (9)
  1. BUPROPION HCL [Concomitant]
  2. ZYPREXA [Suspect]
     Dosage: 10 MG, QD
  3. LITHIUM CARBONATE [Concomitant]
  4. ZOPICLONE [Concomitant]
  5. EFFEXOR XR [Concomitant]
  6. ABILIFY [Concomitant]
  7. ZYPREXA [Suspect]
     Dosage: 5 MG, UNK
  8. LORAZEPAM [Concomitant]
  9. ZYPREXA [Suspect]
     Indication: SCHIZOAFFECTIVE DISORDER
     Dosage: 2.5 MG, QD
     Dates: start: 19990715, end: 20101028

REACTIONS (5)
  - HYPERTENSION [None]
  - DIABETIC NEPHROPATHY [None]
  - BLOOD TRIGLYCERIDES INCREASED [None]
  - HYPOAESTHESIA [None]
  - DIABETES MELLITUS [None]
